FAERS Safety Report 10705538 (Version 3)
Quarter: 2015Q2

REPORT INFORMATION
  Report Type: Report from Study
  Country: AU (occurrence: AU)
  Receive Date: 20150112
  Receipt Date: 20150505
  Transmission Date: 20150821
  Serious: Yes (Hospitalization, Other)
  Sender: FDA-Public Use
  Company Number: AU-ABBVIE-14P-008-1285174-00

PATIENT
  Age: 71 Year
  Sex: Male

DRUGS (2)
  1. DUODOPA [Suspect]
     Active Substance: CARBIDOPA\LEVODOPA
     Dosage: CONT RATE DECREASED TO 2.6 ML/HR
     Route: 050
     Dates: start: 20150120
  2. DUODOPA [Suspect]
     Active Substance: CARBIDOPA\LEVODOPA
     Indication: PARKINSON^S DISEASE
     Route: 050

REACTIONS (11)
  - Stoma site infection [Recovered/Resolved]
  - Discomfort [Unknown]
  - Depression [Unknown]
  - Procedural pain [Unknown]
  - Weight decreased [Recovering/Resolving]
  - Stoma site infection [Unknown]
  - Constipation [Unknown]
  - Dyskinesia [Recovering/Resolving]
  - Stoma site erythema [Unknown]
  - Stoma site infection [Unknown]
  - Excessive granulation tissue [Unknown]

NARRATIVE: CASE EVENT DATE: 20130819
